FAERS Safety Report 6869440-5 (Version None)
Quarter: 2010Q3

REPORT INFORMATION
  Report Type: 
  Country: None (occurrence: None)
  Receive Date: 20100722
  Receipt Date: 20080804
  Transmission Date: 20110219
  Serious: No
  Sender: FDA-Public Use
  Company Number: US-PFIZER INC-2008065295

PATIENT
  Sex: Male
  Weight: 86.4 kg

DRUGS (8)
  1. CHANTIX [Suspect]
     Indication: SMOKING CESSATION THERAPY
     Dates: start: 20080101
  2. PLAVIX [Concomitant]
  3. LIPITOR [Concomitant]
  4. ALL OTHER THERAPEUTIC PRODUCTS [Concomitant]
  5. METOPROLOL [Concomitant]
  6. PROZAC [Concomitant]
  7. PRILOSEC [Concomitant]
  8. CLONAZEPAM [Concomitant]

REACTIONS (1)
  - TOBACCO USER [None]
